FAERS Safety Report 7729347-8 (Version None)
Quarter: 2011Q3

REPORT INFORMATION
  Report Type: 
  Country: None (occurrence: None)
  Receive Date: 20110906
  Receipt Date: 20110829
  Transmission Date: 20111222
  Serious: Yes (Death, Life-Threatening, Other)
  Sender: FDA-Public Use
  Company Number: FR-ASTELLAS-2011EU005695

PATIENT
  Sex: Female

DRUGS (1)
  1. MYCAMINE [Suspect]
     Indication: ANTIFUNGAL PROPHYLAXIS
     Dosage: 50 MG, UID/QD
     Route: 065
     Dates: start: 20110730, end: 20110812

REACTIONS (4)
  - ENTEROCOCCAL SEPSIS [None]
  - GRAFT VERSUS HOST DISEASE [None]
  - CAPILLARY LEAK SYNDROME [None]
  - BRONCHOPULMONARY ASPERGILLOSIS [None]
